FAERS Safety Report 5391587-3 (Version None)
Quarter: 2007Q3

REPORT INFORMATION
  Report Type: 
  Country: None (occurrence: None)
  Receive Date: 20070719
  Receipt Date: 20070710
  Transmission Date: 20080115
  Serious: Yes (Death, Hospitalization)
  Sender: FDA-Public Use
  Company Number: IE-PFIZER INC-2007056750

PATIENT
  Age: 60 Year
  Sex: Female

DRUGS (2)
  1. VFEND [Suspect]
     Indication: RESPIRATORY TRACT INFECTION
  2. AMPHOTERICIN B [Concomitant]

REACTIONS (1)
  - DEATH [None]
